FAERS Safety Report 7101141-0 (Version None)
Quarter: 2010Q4

REPORT INFORMATION
  Report Type: 
  Country: None (occurrence: None)
  Receive Date: 20101105
  Receipt Date: 20100914
  Transmission Date: 20110411
  Serious: No
  Sender: FDA-Public Use
  Company Number: 2010-00900

PATIENT
  Age: 59 Year
  Sex: Female
  Weight: 63.5036 kg

DRUGS (5)
  1. ZICAM COLD REMEDY ORAL MIST [Suspect]
     Dosage: 3 DOSES
     Dates: start: 20100913, end: 20100913
  2. PROTONIX [Concomitant]
  3. NORVASC [Concomitant]
  4. CALCIUM [Concomitant]
  5. MULTI-VITAMIN [Concomitant]

REACTIONS (2)
  - AGEUSIA [None]
  - PALPITATIONS [None]
